FAERS Safety Report 4851495-0 (Version None)
Quarter: 2005Q4

REPORT INFORMATION
  Report Type: 
  Country: None (occurrence: None)
  Receive Date: 20051212
  Receipt Date: 20051128
  Transmission Date: 20060501
  Serious: Yes (Other)
  Sender: FDA-Public Use
  Company Number: PHBS2005PT17639

PATIENT
  Age: 71 Year
  Sex: Female
  Weight: 45 kg

DRUGS (12)
  1. FOLIC ACID [Concomitant]
     Dosage: 10 MG/D
     Route: 050
  2. AMYLASE W/LIPASE/PROTEASE [Concomitant]
     Route: 048
  3. FUROSEMIDE [Concomitant]
     Route: 048
  4. LORAZEPAM [Concomitant]
     Dosage: 1.25 MG/D
     Route: 048
  5. BROMPRIDE/DIMETICONE/PEPSIN A/AMYLASE/LYPASE [Concomitant]
     Route: 048
  6. ISOSORBIDE MONONITRATE [Concomitant]
     Dosage: 25 MG/D
     Route: 048
  7. DOMPERIDONE [Concomitant]
     Route: 048
  8. TICLOPIDINE HCL [Concomitant]
     Dosage: 500 MG/D
     Route: 048
  9. ZOMETA [Suspect]
     Indication: NON-HODGKIN'S LYMPHOMA
     Route: 042
     Dates: start: 20030201, end: 20051027
  10. AMLODIPINE BESYLATE [Concomitant]
     Dosage: 5 MG/D
     Route: 048
  11. CLODRONATE DISODIUM [Concomitant]
     Route: 048
     Dates: end: 20000301
  12. VITAMINS [Concomitant]

REACTIONS (5)
  - ACTINOMYCOSIS [None]
  - KLEBSIELLA INFECTION [None]
  - OSTEOMYELITIS [None]
  - OSTEONECROSIS [None]
  - SURGERY [None]
